FAERS Safety Report 7940731-X (Version None)
Quarter: 2011Q4

REPORT INFORMATION
  Report Type: 
  Country: None (occurrence: None)
  Receive Date: 20111108
  Receipt Date: 20100902
  Transmission Date: 20120403
  Serious: Yes (Hospitalization, Other)
  Sender: FDA-Public Use
  Company Number: PHHY2010US59167

PATIENT
  Sex: Female

DRUGS (1)
  1. ZOMETA [Suspect]
     Dosage: 3 MG, QMO, INTRAVENOUS
     Route: 042

REACTIONS (3)
  - PAIN [None]
  - DEHYDRATION [None]
  - RENAL FAILURE [None]
